FAERS Safety Report 5183513-7 (Version None)
Quarter: 2006Q4

REPORT INFORMATION
  Report Type: 
  Country: None (occurrence: None)
  Receive Date: 20061220
  Receipt Date: 20060113
  Transmission Date: 20070319
  Serious: No
  Sender: FDA-Public Use
  Company Number: CHPA2006US00530

PATIENT
  Age: 57 Year
  Sex: Female
  Weight: 54.5 kg

DRUGS (3)
  1. NICOTINE [Suspect]
     Dosage: 14MG PER DAY
     Route: 062
     Dates: start: 20060103, end: 20060104
  2. NICODERM CQ [Suspect]
     Route: 062
  3. TRAZODONE HCL [Concomitant]

REACTIONS (5)
  - CHEST PAIN [None]
  - CONDITION AGGRAVATED [None]
  - INTENTIONAL DRUG MISUSE [None]
  - MIGRAINE [None]
  - PALPITATIONS [None]
